FAERS Safety Report 23873250 (Version 1)
Quarter: 2024Q2

REPORT INFORMATION
  Report Type: Spontaneous
  Country: CN (occurrence: CN)
  Receive Date: 20240520
  Receipt Date: 20240520
  Transmission Date: 20240716
  Serious: Yes (Hospitalization, Other)
  Sender: FDA-Public Use
  Company Number: CN-HALEON-2174457

PATIENT
  Age: 50 Year
  Sex: Female
  Weight: 65 kg

DRUGS (6)
  1. DICLOFENAC SODIUM [Suspect]
     Active Substance: DICLOFENAC\DICLOFENAC SODIUM
     Indication: Rheumatoid arthritis
     Dosage: 75 MG, BID (MPID : 436735)
     Route: 048
     Dates: start: 20240114, end: 20240225
  2. DICLOFENAC SODIUM [Suspect]
     Active Substance: DICLOFENAC\DICLOFENAC SODIUM
     Dosage: 75 MG, QD
     Route: 048
     Dates: start: 20240421, end: 20240426
  3. IGURATIMOD [Suspect]
     Active Substance: IGURATIMOD
     Indication: Rheumatoid arthritis
     Dosage: 25 DOSAGE FORM, BID (MPID:4935812)
     Route: 048
     Dates: start: 20240114, end: 20240225
  4. IGURATIMOD [Suspect]
     Active Substance: IGURATIMOD
     Dosage: 25 DOSAGE FORM, BID
     Route: 048
     Dates: start: 20240421, end: 20240426
  5. TOFACITINIB CITRATE [Suspect]
     Active Substance: TOFACITINIB CITRATE
     Indication: Rheumatoid arthritis
     Dosage: 5 DOSAGE FORM, BID
     Route: 048
     Dates: start: 20240114, end: 20240225
  6. TOFACITINIB CITRATE [Suspect]
     Active Substance: TOFACITINIB CITRATE
     Dosage: 5 DOSAGE FORM, BID
     Route: 048
     Dates: start: 20240421, end: 20240426

REACTIONS (2)
  - Hepatic enzyme increased [Recovering/Resolving]
  - Drug-induced liver injury [Recovering/Resolving]

NARRATIVE: CASE EVENT DATE: 20240426
